FAERS Safety Report 16402478 (Version 4)
Quarter: 2019Q4

REPORT INFORMATION
  Report Type: Report from Study
  Country: US (occurrence: US)
  Receive Date: 20190607
  Receipt Date: 20191212
  Transmission Date: 20200122
  Serious: Yes (Hospitalization, Other)
  Sender: FDA-Public Use
  Company Number: PHEH2019US023877

PATIENT
  Age: 53 Year
  Sex: Female
  Weight: 92.52 kg

DRUGS (5)
  1. ADIPEX-P [Concomitant]
     Active Substance: PHENTERMINE HYDROCHLORIDE
     Indication: PRODUCT USED FOR UNKNOWN INDICATION
     Dosage: UNK
     Route: 065
  2. NORCO [Concomitant]
     Active Substance: ACETAMINOPHEN\HYDROCODONE BITARTRATE
     Indication: PAIN
     Dosage: UNK
     Route: 065
  3. PRILOSEC [Concomitant]
     Active Substance: OMEPRAZOLE MAGNESIUM
     Indication: PRODUCT USED FOR UNKNOWN INDICATION
     Dosage: UNK
     Route: 065
  4. COSENTYX [Suspect]
     Active Substance: SECUKINUMAB
     Indication: PSORIASIS
     Dosage: 300 MG, QMO (Q4W)
     Route: 065
     Dates: start: 20181202, end: 20190628
  5. NEURONTIN [Concomitant]
     Active Substance: GABAPENTIN
     Indication: PRODUCT USED FOR UNKNOWN INDICATION
     Dosage: UNK
     Route: 065

REACTIONS (9)
  - Urinary incontinence [Unknown]
  - Cystocele [Unknown]
  - Cellulitis [Unknown]
  - Uterine prolapse [Unknown]
  - Adenomyosis [Recovered/Resolved with Sequelae]
  - Uterine haemorrhage [Unknown]
  - Injection related reaction [Unknown]
  - Haemoglobin decreased [Unknown]
  - Uterine enlargement [Unknown]

NARRATIVE: CASE EVENT DATE: 201901
